FAERS Safety Report 6444990-4 (Version None)
Quarter: 2009Q4

REPORT INFORMATION
  Report Type: 
  Country: None (occurrence: None)
  Receive Date: 20091116
  Receipt Date: 20091116
  Transmission Date: 20100525
  Serious: Yes (Hospitalization)
  Sender: FDA-Public Use
  Company Number: None

PATIENT
  Sex: Male
  Weight: 99 kg

DRUGS (2)
  1. ONTAK [Suspect]
     Dosage: 8875 MG
  2. RITUXIMAB (MOAB C2B8 ANTI CD20, CHIMERIC) [Suspect]
     Dosage: 800 MG

REACTIONS (8)
  - ABDOMINAL DISTENSION [None]
  - ATRIAL FIBRILLATION [None]
  - CAPILLARY LEAK SYNDROME [None]
  - DYSPNOEA EXERTIONAL [None]
  - HEPATIC ENZYME INCREASED [None]
  - MITRAL VALVE DISEASE [None]
  - PALPITATIONS [None]
  - WEIGHT INCREASED [None]
